FAERS Safety Report 25820541 (Version 1)
Quarter: 2025Q3

REPORT INFORMATION
  Report Type: Spontaneous
  Country: KR (occurrence: KR)
  Receive Date: 20250919
  Receipt Date: 20250919
  Transmission Date: 20251020
  Serious: Yes (Hospitalization, Other)
  Sender: Kenvue
  Company Number: KR-KENVUE-20250905274

PATIENT

DRUGS (1)
  1. TYLENOL 8HR [Suspect]
     Active Substance: ACETAMINOPHEN
     Indication: Meningioma benign
     Dosage: 1 DOSAGE FORM, THRICE A DAY (1{DF} / 0.33DAY)
     Route: 065
     Dates: start: 20130322, end: 20130322

REACTIONS (2)
  - Liver function test increased [Recovered/Resolved]
  - Loss of consciousness [Recovered/Resolved]

NARRATIVE: CASE EVENT DATE: 20130322
